FAERS Safety Report 9347022 (Version 2)
Quarter: 2014Q3

REPORT INFORMATION
  Report Type: Report from Study
  Country: JP (occurrence: JP)
  Receive Date: 20130613
  Receipt Date: 20140708
  Transmission Date: 20150326
  Serious: Yes (Other)
  Sender: FDA-Public Use
  Company Number: JP-009507513-1305JPN005982

PATIENT
  Age: 37 Year
  Sex: Female
  Weight: 59 kg

DRUGS (11)
  1. GONADOTROPIN, CHORIONIC [Concomitant]
     Active Substance: CHORIOGONADOTROPIN ALFA
     Dosage: 600 (UNDER 1000UNIT), QD
     Route: 030
     Dates: start: 20100727, end: 20100727
  2. ESTRADIOL VALERATE. [Concomitant]
     Active Substance: ESTRADIOL VALERATE
     Indication: IN VITRO FERTILISATION
     Dosage: 6 MG, QD
     Route: 048
  3. GONAL-F [Concomitant]
     Active Substance: FOLLITROPIN
     Dosage: 225 (UNDER 1000UNIT), QD
     Route: 058
     Dates: start: 20100720, end: 20100721
  4. BAYASPIRIN [Concomitant]
     Active Substance: ASPIRIN
     Indication: IN VITRO FERTILISATION
     Dosage: 100 MG, QD
     Route: 048
  5. GONADOTROPIN, CHORIONIC [Concomitant]
     Active Substance: CHORIOGONADOTROPIN ALFA
     Indication: OVULATION INDUCTION
     Dosage: 5000 (UNDER 1000UNIT), QD
     Route: 065
     Dates: start: 20100728, end: 20100728
  6. GANIRELIX ACETATE. [Suspect]
     Active Substance: GANIRELIX ACETATE
     Indication: PREVENTION OF PREMATURE OVULATION
     Dosage: 0.25 MG, QD
     Route: 058
     Dates: start: 20100727, end: 20100727
  7. GONAL-F [Concomitant]
     Active Substance: FOLLITROPIN
     Indication: IN VITRO FERTILISATION
     Dosage: 450 (UNDER 1000UNIT), QD
     Route: 058
     Dates: start: 20100718, end: 20100718
  8. GONADOTROPIN, CHORIONIC [Concomitant]
     Active Substance: CHORIOGONADOTROPIN ALFA
     Indication: IN VITRO FERTILISATION
     Dosage: 450 (UNDER 1000UNIT), QD
     Route: 030
     Dates: start: 20100722, end: 20100723
  9. GONAL-F [Concomitant]
     Active Substance: FOLLITROPIN
     Dosage: 600 (UNDER 1000UNIT), QD
     Route: 058
     Dates: start: 20100724, end: 20100726
  10. VITAMIN E ACETATE [Concomitant]
     Active Substance: .ALPHA.-TOCOPHEROL ACETATE
     Indication: IN VITRO FERTILISATION
     Dosage: 150 MG, QD
     Route: 048
  11. GONAL-F [Concomitant]
     Active Substance: FOLLITROPIN
     Dosage: 300 (UNDER 1000UNIT), QD
     Route: 058
     Dates: start: 20100719, end: 20100719

REACTIONS (2)
  - Foetal death [Recovered/Resolved]
  - Abortion [Unknown]

NARRATIVE: CASE EVENT DATE: 20100908
